FAERS Safety Report 4801782-7 (Version None)
Quarter: 2005Q4

REPORT INFORMATION
  Report Type: 
  Country: None (occurrence: None)
  Receive Date: 20051018
  Receipt Date: 20051006
  Transmission Date: 20060501
  Serious: Yes (Hospitalization, Other)
  Sender: FDA-Public Use
  Company Number: US-JNJFOC-20051001928

PATIENT
  Sex: Female

DRUGS (9)
  1. DURAGESIC-100 [Suspect]
     Route: 062
  2. DURAGESIC-100 [Suspect]
     Route: 062
  3. DURAGESIC-100 [Suspect]
     Route: 062
  4. DURAGESIC-100 [Suspect]
     Route: 062
  5. VICODIN [Concomitant]
     Route: 048
  6. VICODIN [Concomitant]
     Indication: PAIN
     Dosage: 15/1500 MG, 1 IN 24 HOURS, SINCE 1985
     Route: 048
  7. NORCO [Concomitant]
     Route: 048
  8. NORCO [Concomitant]
     Indication: PAIN
     Route: 048
  9. NEURONTIN [Concomitant]
     Indication: PAIN
     Route: 048

REACTIONS (4)
  - DEPRESSION [None]
  - DRUG INEFFECTIVE [None]
  - INTERVERTEBRAL DISC PROTRUSION [None]
  - SILENT MYOCARDIAL INFARCTION [None]
